FAERS Safety Report 6593541-2 (Version None)
Quarter: 2010Q1

REPORT INFORMATION
  Report Type: 
  Country: None (occurrence: None)
  Receive Date: 20100222
  Receipt Date: 20090714
  Transmission Date: 20100710
  Serious: No
  Sender: FDA-Public Use
  Company Number: US-BRISTOL-MYERS SQUIBB COMPANY-14696967

PATIENT
  Age: 44 Year
  Sex: Female

DRUGS (1)
  1. ORENCIA [Suspect]
     Indication: RHEUMATOID ARTHRITIS
     Dosage: RECEIVED 2 OR 3 DOSES
     Route: 042
     Dates: start: 20080415

REACTIONS (5)
  - DIARRHOEA [None]
  - DYSPHONIA [None]
  - OROPHARYNGEAL PAIN [None]
  - UPPER RESPIRATORY TRACT INFECTION [None]
  - VOMITING [None]
